FAERS Safety Report 5044284-8 (Version None)
Quarter: 2006Q2

REPORT INFORMATION
  Report Type: 
  Country: None (occurrence: None)
  Receive Date: 20060629
  Receipt Date: 20060620
  Transmission Date: 20061013
  Serious: Yes (Other)
  Sender: FDA-Public Use
  Company Number: 2006078224

PATIENT
  Age: 64 Year
  Sex: Male

DRUGS (7)
  1. TAHOR              (ATORVASTATIN) [Suspect]
     Dosage: 10 MG (PER DAY)
     Dates: end: 20060609
  2. CLOPIDOGREL [Concomitant]
  3. DILTIAZEM [Concomitant]
  4. PERINDOPRIL           (PERINDOPRIL) [Concomitant]
  5. ESOMEPRAZOLE              (ESOMEPRAZOLE) [Concomitant]
  6. BAMBUTEROL                  (BAMBUTEROL) [Concomitant]
  7. FENOTEROL W/ IPRATROPIUM                 (FENOTEROL, IPRATROPIUM) [Concomitant]

REACTIONS (3)
  - HAEMATOMA [None]
  - TENDON RUPTURE [None]
  - TENDONITIS [None]
